FAERS Safety Report 8687392 (Version 7)
Quarter: 2013Q2

REPORT INFORMATION
  Report Type: Report from Study
  Country: FR (occurrence: FR)
  Receive Date: 20120727
  Receipt Date: 20130529
  Transmission Date: 20140414
  Serious: Yes (Hospitalization)
  Sender: FDA-Public Use
  Company Number: FR-PFIZER INC-2012143034

PATIENT
  Age: 49 Year
  Sex: Female
  Weight: 45 kg

DRUGS (5)
  1. CRIZOTINIB [Suspect]
     Indication: NON-SMALL CELL LUNG CANCER
     Dosage: 200 MG, 2X/DAY
     Route: 048
     Dates: start: 20101019, end: 20120715
  2. FONDAPARINUX [Concomitant]
     Indication: PULMONARY EMBOLISM
     Dosage: 5 MG, ONCE DAILY
     Route: 058
     Dates: start: 2010, end: 20120713
  3. TRAMADOL [Concomitant]
     Indication: PAIN
     Dosage: 50 MG, TWICE DAILY
     Route: 048
     Dates: start: 2010
  4. ZOPHREN [Concomitant]
     Indication: NAUSEA
     Dosage: 8 MG, TWICE DAILY
     Route: 048
     Dates: start: 2011
  5. ZOPHREN [Concomitant]
     Indication: VOMITING

REACTIONS (1)
  - Systemic lupus erythematosus [Recovered/Resolved]
